FAERS Safety Report 20856173 (Version 1)
Quarter: 2022Q2

REPORT INFORMATION
  Report Type: Other
  Country: BR (occurrence: BR)
  Receive Date: 20220520
  Receipt Date: 20220520
  Transmission Date: 20220721
  Serious: Yes (Hospitalization)
  Sender: FDA-Public Use
  Company Number: BR-Genus_Lifesciences-USA-POI0580202200160

PATIENT
  Age: 32 Year
  Sex: Male

DRUGS (1)
  1. GOPRELTO [Suspect]
     Active Substance: COCAINE HYDROCHLORIDE
     Indication: Product used for unknown indication
     Dosage: UNKNOWN
     Route: 065
     Dates: start: 2015, end: 2020

REACTIONS (1)
  - Progressive multifocal leukoencephalopathy [Recovered/Resolved with Sequelae]

NARRATIVE: CASE EVENT DATE: 20200101
